FAERS Safety Report 15853505 (Version 1)
Quarter: 2019Q1

REPORT INFORMATION
  Report Type: Spontaneous
  Country: US (occurrence: US)
  Receive Date: 20190120
  Receipt Date: 20190120
  Transmission Date: 20190417
  Serious: Yes (Disabling, Other)
  Sender: FDA-Public Use
  Company Number: None

PATIENT
  Age: 59 Year
  Sex: Female
  Weight: 62.55 kg

DRUGS (4)
  1. FISH OIL [Concomitant]
     Active Substance: FISH OIL
  2. NATURE-THROID [Suspect]
     Active Substance: THYROID, PORCINE
  3. DESICCATED THYROID [Concomitant]
  4. ORGANIC DAILY MULTIVITAMIN [Concomitant]

REACTIONS (23)
  - Language disorder [None]
  - Headache [None]
  - Insomnia [None]
  - Body temperature decreased [None]
  - Functional gastrointestinal disorder [None]
  - Dizziness [None]
  - General physical health deterioration [None]
  - Eating disorder [None]
  - Feeling abnormal [None]
  - Ageusia [None]
  - Anosmia [None]
  - Asthenia [None]
  - Thyroid function test abnormal [None]
  - Product substitution issue [None]
  - Liver function test increased [None]
  - Drug effect incomplete [None]
  - Blood pressure increased [None]
  - Decreased appetite [None]
  - Muscular weakness [None]
  - Arthralgia [None]
  - Pain in extremity [None]
  - Weight decreased [None]
  - Muscle atrophy [None]

NARRATIVE: CASE EVENT DATE: 20180829
